FAERS Safety Report 23611560 (Version 1)
Quarter: 2024Q1

REPORT INFORMATION
  Report Type: Report from Study
  Country: IT (occurrence: IT)
  Receive Date: 20240308
  Receipt Date: 20240308
  Transmission Date: 20240410
  Serious: Yes (Life-Threatening, Hospitalization)
  Sender: FDA-Public Use
  Company Number: IT-RIGEL Pharmaceuticals, INC-2024FOS000280

PATIENT
  Age: 81 Year
  Sex: Female

DRUGS (1)
  1. FOSTAMATINIB DISODIUM [Suspect]
     Active Substance: FOSTAMATINIB DISODIUM
     Indication: Immune thrombocytopenia
     Dosage: 150 UNK, BID
     Route: 048
     Dates: start: 20230322, end: 20230811

REACTIONS (3)
  - Neutropenia [Recovered/Resolved]
  - Intermenstrual bleeding [Unknown]
  - Platelet count decreased [Unknown]

NARRATIVE: CASE EVENT DATE: 20230810
